FAERS Safety Report 14638779 (Version 1)
Quarter: 2018Q1

REPORT INFORMATION
  Report Type: Spontaneous
  Country: FR (occurrence: FR)
  Receive Date: 20180315
  Receipt Date: 20180315
  Transmission Date: 20180509
  Serious: Yes (Other)
  Sender: FDA-Public Use
  Company Number: FR-MERCK KGAA-2043747

PATIENT
  Age: 25 Year
  Sex: Female

DRUGS (1)
  1. NOVOTHYROX [Suspect]
     Active Substance: LEVOTHYROXINE SODIUM
     Indication: HYPOTHYROIDISM

REACTIONS (15)
  - Impaired self-care [None]
  - Myalgia [None]
  - Depression [None]
  - Blood thyroid stimulating hormone increased [None]
  - Fatigue [None]
  - Impaired work ability [None]
  - Loss of personal independence in daily activities [None]
  - Thirst [None]
  - Syncope [None]
  - Migraine [None]
  - Visual impairment [None]
  - Back pain [None]
  - Dizziness [None]
  - Social avoidant behaviour [None]
  - C-reactive protein increased [None]

NARRATIVE: CASE EVENT DATE: 20170922
